FAERS Safety Report 5723073-2 (Version None)
Quarter: 2008Q2

REPORT INFORMATION
  Report Type: 
  Country: None (occurrence: None)
  Receive Date: 20080425
  Receipt Date: 20080418
  Transmission Date: 20081010
  Serious: Yes (Other)
  Sender: FDA-Public Use
  Company Number: 2008-01932

PATIENT
  Age: 10 Year
  Sex: Male

DRUGS (1)
  1. TRELSTAR [Suspect]
     Indication: ADRENOGENITAL SYNDROME
     Dosage: INTRAMSUCULAR
     Route: 030

REACTIONS (2)
  - BONE FORMATION DECREASED [None]
  - IMPAIRED HEALING [None]
